FAERS Safety Report 22142039 (Version 1)
Quarter: 2023Q1

REPORT INFORMATION
  Report Type: Report from Study
  Country: IE (occurrence: IE)
  Receive Date: 20230327
  Receipt Date: 20230327
  Transmission Date: 20230417
  Serious: Yes (Other)
  Sender: FDA-Public Use
  Company Number: IE-STADA-271870

PATIENT
  Age: 72 Year
  Sex: Male

DRUGS (10)
  1. BORTEZOMIB [Suspect]
     Active Substance: BORTEZOMIB
     Indication: Plasma cell myeloma
     Dosage: AS PER CHEMO PRESCIPTION
     Route: 058
  2. NUPRIN [Concomitant]
     Active Substance: IBUPROFEN
     Dosage: 75 MG, 1X/DAY
  3. XARELTO [Concomitant]
     Active Substance: RIVAROXABAN
     Dosage: 20 MG, 1X/DAY
  4. METFORMIN [Concomitant]
     Active Substance: METFORMIN HYDROCHLORIDE
     Dosage: FREQ:12 H;
  5. LEVOTHYROXINE [Concomitant]
     Active Substance: LEVOTHYROXINE
     Dosage: 75 MG, 1X/DAY
  6. LANOXIN [Concomitant]
     Active Substance: DIGOXIN
     Dosage: 125 UG, 1X/DAY
  7. PANTOPRAZOLE [Concomitant]
     Active Substance: PANTOPRAZOLE
     Dosage: 40 MG, 1X/DAY
  8. BISOP [Concomitant]
     Dosage: 12.5 MG, 1X/DAY
  9. FUROSEMIDE [Concomitant]
     Active Substance: FUROSEMIDE
     Dosage: FREQ:12 H;
  10. ATORVASTATIN [Concomitant]
     Active Substance: ATORVASTATIN
     Dosage: 80 MG, 1X/DAY

REACTIONS (2)
  - Neurotoxicity [Not Recovered/Not Resolved]
  - Paraesthesia [Unknown]
